FAERS Safety Report 6338096-2 (Version None)
Quarter: 2009Q3

REPORT INFORMATION
  Report Type: 
  Country: None (occurrence: None)
  Receive Date: 20090902
  Receipt Date: 20090827
  Transmission Date: 20100115
  Serious: Yes (Hospitalization)
  Sender: FDA-Public Use
  Company Number: PHHY2009JP30961

PATIENT
  Sex: Female
  Weight: 47 kg

DRUGS (16)
  1. SIMULECT [Suspect]
     Indication: RENAL TRANSPLANT
     Dosage: 20 MG, ONCE/SINGLE
     Route: 042
     Dates: start: 20080909, end: 20080909
  2. SIMULECT [Suspect]
     Dosage: 20 MG, ONCE/SINGLE
     Route: 042
     Dates: start: 20080913, end: 20080913
  3. NEORAL [Suspect]
     Indication: RENAL TRANSPLANT
     Dosage: 200 MG/DAY
     Route: 048
     Dates: start: 20080915
  4. CELLCEPT [Suspect]
     Indication: RENAL TRANSPLANT
     Dosage: 1500 MG/DAY
     Route: 048
     Dates: start: 20080909
  5. PREDONINE [Suspect]
     Indication: RENAL TRANSPLANT
     Dosage: 50 MG/DAY
     Route: 048
     Dates: start: 20080912
  6. BAKTAR [Suspect]
     Indication: PNEUMOCYSTIS JIROVECI PNEUMONIA
  7. SANDIMMUNE [Concomitant]
     Indication: RENAL TRANSPLANT
     Dosage: 48 MG
     Route: 042
     Dates: start: 20080909, end: 20080915
  8. SOLU-MEDROL [Concomitant]
     Indication: RENAL TRANSPLANT
     Dosage: 625 MG
     Route: 042
     Dates: start: 20080909
  9. SOLU-MEDROL [Concomitant]
     Dosage: 250 MG
     Route: 042
  10. SOLU-MEDROL [Concomitant]
     Dosage: 125 MG
     Route: 042
     Dates: end: 20080911
  11. PENTCILLIN [Concomitant]
     Indication: INFECTION PROPHYLAXIS
     Dosage: 2 G
     Route: 042
     Dates: start: 20080909, end: 20080914
  12. ALBUMIN (HUMAN) [Concomitant]
     Indication: HYPOALBUMINAEMIA
     Dosage: 100 ML
     Route: 042
     Dates: start: 20080909, end: 20080911
  13. AMLODIN OD [Concomitant]
     Indication: HYPERTENSION
     Dosage: 5 MG
     Route: 048
     Dates: start: 20080910
  14. TAKEPRON [Concomitant]
     Indication: PROPHYLAXIS
     Dosage: 30 MG
     Route: 048
     Dates: start: 20081001
  15. ZANTAC [Concomitant]
     Indication: PROPHYLAXIS
     Dosage: 2 DF
     Route: 042
     Dates: start: 20080909, end: 20080911
  16. ZANTAC [Concomitant]
     Dosage: 2 DF
     Route: 048
     Dates: start: 20080912, end: 20080930

REACTIONS (7)
  - ABDOMINAL PAIN UPPER [None]
  - CYTOMEGALOVIRUS HEPATITIS [None]
  - HEPATIC FUNCTION ABNORMAL [None]
  - PANCYTOPENIA [None]
  - PNEUMOCYSTIS JIROVECI PNEUMONIA [None]
  - PRODUCTIVE COUGH [None]
  - RESPIRATORY DISTRESS [None]
